FAERS Safety Report 9165409 (Version 1)
Quarter: 2013Q1

REPORT INFORMATION
  Report Type: Spontaneous
  Country: FR (occurrence: FR)
  Receive Date: 20130315
  Receipt Date: 20130315
  Transmission Date: 20140127
  Serious: Yes (Other)
  Sender: FDA-Public Use
  Company Number: FR-ABBOTT-13X-056-1063369-00

PATIENT
  Age: 72 Year
  Sex: Female

DRUGS (2)
  1. DEPAKINE [Suspect]
     Indication: PRODUCT USED FOR UNKNOWN INDICATION
     Dosage: 1 GRAM(S): ONCE
     Route: 048
     Dates: start: 20130203, end: 20130203
  2. TERCIAN [Suspect]
     Indication: PRODUCT USED FOR UNKNOWN INDICATION
     Dosage: 50 MILLIGRAM(S): ONCE
     Route: 048
     Dates: start: 20130203, end: 20130203

REACTIONS (2)
  - Medication error [Unknown]
  - Somnolence [Recovered/Resolved]
